FAERS Safety Report 4844599-X (Version None)
Quarter: 2005Q4

REPORT INFORMATION
  Report Type: 
  Country: None (occurrence: None)
  Receive Date: 20051125
  Receipt Date: 20051110
  Transmission Date: 20060501
  Serious: Yes (Hospitalization)
  Sender: FDA-Public Use
  Company Number: USA0509109460

PATIENT
  Age: 82 Year
  Sex: Female

DRUGS (3)
  1. ALIMTA [Suspect]
     Indication: PLEURAL MESOTHELIOMA MALIGNANT
     Dosage: SEE IMAGE
     Dates: start: 20050801
  2. CARBOPLATIN [Concomitant]
  3. NEUPOGEN [Concomitant]

REACTIONS (4)
  - BLOOD CALCIUM DECREASED [None]
  - HYPOMAGNESAEMIA [None]
  - THROMBOCYTOPENIA [None]
  - WHITE BLOOD CELL COUNT DECREASED [None]
